FAERS Safety Report 4920681-3 (Version None)
Quarter: 2006Q1

REPORT INFORMATION
  Report Type: 
  Country: None (occurrence: None)
  Receive Date: 20060223
  Receipt Date: 20060210
  Transmission Date: 20060701
  Serious: Yes (Hospitalization)
  Sender: FDA-Public Use
  Company Number: US-BRISTOL-MYERS SQUIBB COMPANY-13279567

PATIENT
  Age: 49 Year
  Sex: Male
  Weight: 84 kg

DRUGS (10)
  1. CETUXIMAB [Suspect]
     Indication: SQUAMOUS CELL CARCINOMA
     Route: 042
     Dates: start: 20060208, end: 20060208
  2. DOCETAXEL [Suspect]
     Indication: SQUAMOUS CELL CARCINOMA
     Route: 042
     Dates: start: 20060201, end: 20060201
  3. RADIATION THERAPY [Suspect]
     Dates: start: 20060214, end: 20060214
  4. LISINOPRIL [Suspect]
  5. TOPROL [Suspect]
  6. NITROGLYCERIN [Concomitant]
  7. MAGNESIUM [Concomitant]
  8. OXYCONTIN [Concomitant]
  9. PERCOCET [Concomitant]
  10. ZETIA [Concomitant]

REACTIONS (7)
  - DEHYDRATION [None]
  - DIZZINESS [None]
  - DRY MOUTH [None]
  - DYSPHAGIA [None]
  - FATIGUE [None]
  - HYPOTENSION [None]
  - MUCOSAL INFLAMMATION [None]
